FAERS Safety Report 7942539 (Version 4)
Quarter: 2015Q1

REPORT INFORMATION
  Report Type: Spontaneous
  Country: US (occurrence: US)
  Receive Date: 20110512
  Receipt Date: 20150211
  Transmission Date: 20150721
  Serious: Yes (Other)
  Sender: FDA-Public Use
  Company Number: US-ASTRAZENECA-2011SE26914

PATIENT
  Age: 52 Year
  Sex: Male

DRUGS (4)
  1. NEXIUM [Suspect]
     Active Substance: ESOMEPRAZOLE MAGNESIUM
     Route: 048
  2. SEROQUEL [Suspect]
     Active Substance: QUETIAPINE FUMARATE
     Route: 048
  3. SYMBICORT [Suspect]
     Active Substance: BUDESONIDE\FORMOTEROL FUMARATE DIHYDRATE
     Route: 055
  4. NEXIUM [Suspect]
     Active Substance: ESOMEPRAZOLE MAGNESIUM
     Route: 048

REACTIONS (21)
  - Intervertebral disc protrusion [Unknown]
  - Neuralgia [Unknown]
  - Hiatus hernia [Unknown]
  - Diabetic neuropathy [Unknown]
  - Nerve injury [Unknown]
  - Asthma [Unknown]
  - Osteoarthritis [Unknown]
  - Anaemia [Unknown]
  - Schizophrenia [Unknown]
  - Diabetes mellitus [Unknown]
  - Narcolepsy [Unknown]
  - Hypersomnia [Unknown]
  - Spinal column stenosis [Unknown]
  - Anxiety [Unknown]
  - Drug dose omission [Unknown]
  - Chronic kidney disease [Unknown]
  - Sleep apnoea syndrome [Unknown]
  - Dyspepsia [Unknown]
  - Off label use [Unknown]
  - Diabetic complication [Unknown]
  - Gastrooesophageal reflux disease [Unknown]
